FAERS Safety Report 15473030 (Version 4)
Quarter: 2023Q4

REPORT INFORMATION
  Report Type: Report from Study
  Country: PT (occurrence: PT)
  Receive Date: 20181008
  Receipt Date: 20231127
  Transmission Date: 20240110
  Serious: Yes (Life-Threatening, Other)
  Sender: FDA-Public Use
  Company Number: PT-AUROBINDO-AUR-APL-2018-048823

PATIENT
  Age: 26 Year
  Sex: Male

DRUGS (30)
  1. OLANZAPINE [Suspect]
     Active Substance: OLANZAPINE
     Indication: HIV infection
     Dosage: UNK
     Route: 048
  2. OLANZAPINE [Suspect]
     Active Substance: OLANZAPINE
     Indication: Hepatitis C
     Dosage: 1 ML OF TRIAMCINOLONE 40 MG INJECTED
     Route: 065
  3. OLANZAPINE [Suspect]
     Active Substance: OLANZAPINE
     Indication: Chronic hepatitis C
  4. RISPERIDONE [Suspect]
     Active Substance: RISPERIDONE
     Indication: Chronic hepatitis C
     Dosage: UNK
     Route: 048
  5. RISPERIDONE [Suspect]
     Active Substance: RISPERIDONE
     Indication: Hepatitis C
     Dosage: 1 ML OF TRIAMCINOLONE 40 MG INJECTED
     Route: 065
  6. RISPERIDONE [Suspect]
     Active Substance: RISPERIDONE
     Indication: HIV infection
  7. TIAPRIDE [Suspect]
     Active Substance: TIAPRIDE
     Indication: Chronic hepatitis C
     Dosage: UNK
     Route: 048
  8. TIAPRIDE [Suspect]
     Active Substance: TIAPRIDE
     Indication: Hepatitis C
     Dosage: 1 ML OF TRIAMCINOLONE 40 MG INJECTED
     Route: 065
  9. TIAPRIDE [Suspect]
     Active Substance: TIAPRIDE
     Indication: HIV infection
  10. CYAMEMAZINE [Suspect]
     Active Substance: CYAMEMAZINE
     Indication: Chronic hepatitis C
     Dosage: UNK
     Route: 048
  11. CYAMEMAZINE [Suspect]
     Active Substance: CYAMEMAZINE
     Indication: Hepatitis C
     Dosage: 1 ML OF TRIAMCINOLONE 40 MG INJECTED
     Route: 065
  12. CYAMEMAZINE [Suspect]
     Active Substance: CYAMEMAZINE
     Indication: HIV infection
  13. BIPERIDEN [Suspect]
     Active Substance: BIPERIDEN
     Indication: Chronic hepatitis C
     Dosage: UNK
     Route: 048
  14. BIPERIDEN [Suspect]
     Active Substance: BIPERIDEN
     Indication: Hepatitis C
     Dosage: 1 ML OF TRIAMCINOLONE 40 MG INJECTED
     Route: 065
  15. BIPERIDEN [Suspect]
     Active Substance: BIPERIDEN
     Indication: HIV infection
  16. CLOXAZOLAM [Suspect]
     Active Substance: CLOXAZOLAM
     Indication: Chronic hepatitis C
     Dosage: UNK
     Route: 048
  17. CLOXAZOLAM [Suspect]
     Active Substance: CLOXAZOLAM
     Indication: Hepatitis C
     Dosage: 1 ML OF TRIAMCINOLONE 40 MG INJECTEDUNK
     Route: 065
  18. CLOXAZOLAM [Suspect]
     Active Substance: CLOXAZOLAM
     Indication: HIV infection
  19. DIDANOSINE [Suspect]
     Active Substance: DIDANOSINE
     Indication: Chronic hepatitis C
     Dosage: UNK
     Route: 048
  20. DIDANOSINE [Suspect]
     Active Substance: DIDANOSINE
     Indication: Hepatitis C
     Dosage: 1 ML OF TRIAMCINOLONE 40 MG INJECTED
     Route: 065
  21. DIDANOSINE [Suspect]
     Active Substance: DIDANOSINE
     Indication: HIV infection
  22. LOPINAVIR\RITONAVIR [Suspect]
     Active Substance: LOPINAVIR\RITONAVIR
     Indication: Chronic hepatitis C
     Dosage: UNK
     Route: 048
  23. LOPINAVIR\RITONAVIR [Suspect]
     Active Substance: LOPINAVIR\RITONAVIR
     Indication: Hepatitis C
     Dosage: 1 ML OF TRIAMCINOLONE 40 MG INJECTED
     Route: 065
  24. LOPINAVIR\RITONAVIR [Suspect]
     Active Substance: LOPINAVIR\RITONAVIR
     Indication: HIV infection
  25. METHADONE HYDROCHLORIDE [Suspect]
     Active Substance: METHADONE HYDROCHLORIDE
     Indication: Chronic hepatitis C
     Dosage: UNK
     Route: 048
  26. METHADONE HYDROCHLORIDE [Suspect]
     Active Substance: METHADONE HYDROCHLORIDE
     Indication: Hepatitis C
     Dosage: 1 ML OF TRIAMCINOLONE 40 MG INJECTED
     Route: 065
  27. METHADONE HYDROCHLORIDE [Suspect]
     Active Substance: METHADONE HYDROCHLORIDE
     Indication: HIV infection
  28. STAVUDINE [Suspect]
     Active Substance: STAVUDINE
     Indication: Chronic hepatitis C
     Dosage: UNK
     Route: 048
  29. STAVUDINE [Suspect]
     Active Substance: STAVUDINE
     Indication: Hepatitis C
     Dosage: 1 ML OF TRIAMCINOLONE 40 MG INJECTED
     Route: 065
  30. STAVUDINE [Suspect]
     Active Substance: STAVUDINE
     Indication: HIV infection

REACTIONS (2)
  - Drug-induced liver injury [Recovered/Resolved]
  - Hepatic fibrosis [Unknown]
